FAERS Safety Report 6151150-3 (Version None)
Quarter: 2009Q2

REPORT INFORMATION
  Report Type: 
  Country: None (occurrence: None)
  Receive Date: 20090410
  Receipt Date: 20090401
  Transmission Date: 20091009
  Serious: Yes (Hospitalization)
  Sender: FDA-Public Use
  Company Number: CA-PFIZER INC-2009172543

PATIENT

DRUGS (6)
  1. BLINDED *PLACEBO [Suspect]
     Indication: TRANSITIONAL CELL CARCINOMA
     Dosage: 50 MG, 1X/DAY
     Dates: start: 20090202
  2. BLINDED SUNITINIB MALATE [Suspect]
     Indication: TRANSITIONAL CELL CARCINOMA
     Dosage: 50 MG, 1X/DAY
     Dates: start: 20090202
  3. ASCORBIC ACID [Concomitant]
     Indication: PROPHYLAXIS
     Dosage: UNK
     Route: 048
  4. VITAMIN D [Concomitant]
     Indication: PROPHYLAXIS
     Dosage: UNK
     Route: 048
  5. TEMAZEPAM [Concomitant]
     Indication: INSOMNIA
     Dosage: UNK
     Route: 048
     Dates: start: 20080401
  6. MULTI-VITAMINS [Concomitant]
     Indication: PROPHYLAXIS

REACTIONS (1)
  - UROSEPSIS [None]
